FAERS Safety Report 11320905 (Version 1)
Quarter: 2015Q3

REPORT INFORMATION
  Report Type: Spontaneous
  Country: US (occurrence: US)
  Receive Date: 20150729
  Receipt Date: 20150729
  Transmission Date: 20151125
  Serious: No
  Sender: FDA-Public Use
  Company Number: US-ENDO PHARMACEUTICALS INC.-HYDR20140025

PATIENT
  Age: 52 Year
  Sex: Female

DRUGS (2)
  1. METHYLPREDNISOLONE TABLETS 4MG [Concomitant]
     Active Substance: METHYLPREDNISOLONE
     Indication: DERMATITIS
     Route: 048
     Dates: start: 20141202
  2. HYDROCORTISONE TABLETS 5MG [Suspect]
     Active Substance: HYDROCORTISONE
     Indication: DERMATITIS
     Route: 048
     Dates: start: 20141203

REACTIONS (1)
  - Skin reaction [Not Recovered/Not Resolved]

NARRATIVE: CASE EVENT DATE: 201412
